FAERS Safety Report 10311340 (Version 1)
Quarter: 2014Q3

REPORT INFORMATION
  Report Type: Spontaneous
  Country: US (occurrence: None)
  Receive Date: 20140716
  Receipt Date: 20140716
  Transmission Date: 20150326
  Serious: Yes (Other)
  Sender: FDA-Public Use
  Company Number: None

PATIENT
  Age: 55 Year
  Sex: Male
  Weight: 65.77 kg

DRUGS (1)
  1. IMBRUVICA [Suspect]
     Active Substance: IBRUTINIB
     Indication: CHRONIC LYMPHOCYTIC LEUKAEMIA
     Dosage: 140X3  ONCE DAILY  TAKEN BY MOUTH
     Route: 048

REACTIONS (3)
  - Dyspepsia [None]
  - Gastric disorder [None]
  - Gastrointestinal disorder [None]

NARRATIVE: CASE EVENT DATE: 20140701
